FAERS Safety Report 11969446 (Version 1)
Quarter: 2016Q1

REPORT INFORMATION
  Report Type: Spontaneous
  Country: US (occurrence: US)
  Receive Date: 20160128
  Receipt Date: 20160128
  Transmission Date: 20160526
  Serious: No
  Sender: FDA-Public Use
  Company Number: US-BAYER-2016-017138

PATIENT
  Age: 27 Year
  Sex: Female

DRUGS (2)
  1. CLARITIN [Suspect]
     Active Substance: LORATADINE
     Dosage: 2 DF, UNK
  2. CLARITIN [Suspect]
     Active Substance: LORATADINE

REACTIONS (2)
  - Drug ineffective [None]
  - Product use issue [None]
